FAERS Safety Report 12202672 (Version 4)
Quarter: 2016Q4

REPORT INFORMATION
  Report Type: Spontaneous
  Country: BR (occurrence: BR)
  Receive Date: 20160322
  Receipt Date: 20161227
  Transmission Date: 20170207
  Serious: Yes (Congenital Anomaly, Other)
  Sender: FDA-Public Use
  Company Number: BR-ABBVIE-16P-020-1588365-00

PATIENT
  Age: 1 Day
  Sex: Male
  Weight: 3.48 kg

DRUGS (3)
  1. VALPROIC ACID. [Suspect]
     Active Substance: VALPROIC ACID
     Indication: MATERNAL EXPOSURE TIMING UNSPECIFIED
     Route: 064
  2. CARBAMAZEPINE. [Suspect]
     Active Substance: CARBAMAZEPINE
     Indication: MATERNAL EXPOSURE TIMING UNSPECIFIED
     Route: 064
  3. MISOPROSTOL. [Suspect]
     Active Substance: MISOPROSTOL
     Indication: MATERNAL EXPOSURE TIMING UNSPECIFIED
     Route: 064

REACTIONS (19)
  - Microcephaly [Unknown]
  - Astigmatism [Unknown]
  - Varicella [Unknown]
  - Skull malformation [Unknown]
  - Micrognathia [Unknown]
  - Anomaly of orbit, congenital [Unknown]
  - Foetal exposure during pregnancy [Unknown]
  - Neonatal respiratory distress syndrome [Recovered/Resolved]
  - Polyhydramnios [Unknown]
  - Oropharyngeal blistering [Unknown]
  - Encephalocele [Unknown]
  - Intentional product misuse [Unknown]
  - Anomaly of external ear congenital [Unknown]
  - Congenital cystic lung [Unknown]
  - Meningocele [Unknown]
  - Hypermetropia [Unknown]
  - Haemangioma congenital [Unknown]
  - Arachnoid cyst [Unknown]
  - Cytogenetic abnormality [Unknown]
